FAERS Safety Report 25367466 (Version 1)
Quarter: 2025Q2

REPORT INFORMATION
  Report Type: Spontaneous
  Country: JP (occurrence: JP)
  Receive Date: 20250528
  Receipt Date: 20250528
  Transmission Date: 20250716
  Serious: Yes (Hospitalization, Other)
  Sender: EXELA PHARMA SCIENCES
  Company Number: JP-EXELAPHARMA-2025EXLA00090

PATIENT
  Age: 30 Year
  Sex: Male
  Weight: 130 kg

DRUGS (11)
  1. BLOXIVERZ [Suspect]
     Active Substance: NEOSTIGMINE METHYLSULFATE
     Indication: Muscle relaxant therapy
  2. BLOXIVERZ [Suspect]
     Active Substance: NEOSTIGMINE METHYLSULFATE
  3. GLYRX-PF [Suspect]
     Active Substance: GLYCOPYRROLATE
     Indication: Muscle relaxant therapy
  4. GLYRX-PF [Suspect]
     Active Substance: GLYCOPYRROLATE
  5. MIDAZOLAM [Concomitant]
     Active Substance: MIDAZOLAM
     Indication: Induction of anaesthesia
  6. FENTANYL [Concomitant]
     Active Substance: FENTANYL
     Indication: Induction of anaesthesia
  7. KETAMINE [Concomitant]
     Active Substance: KETAMINE
     Indication: Induction of anaesthesia
  8. SUCCINYLCHOLINE [Concomitant]
     Active Substance: SUCCINYLCHOLINE
  9. CISATRACURIUM [Concomitant]
     Active Substance: CISATRACURIUM
     Indication: Muscle relaxant therapy
  10. VITAMIN K [Concomitant]
     Active Substance: PHYTONADIONE
     Route: 042
  11. FRESH FROZEN PLASMA [Concomitant]
     Active Substance: HUMAN PLASMA

REACTIONS (1)
  - Drug ineffective [Not Recovered/Not Resolved]
